FAERS Safety Report 13097208 (Version 1)
Quarter: 2017Q1

REPORT INFORMATION
  Report Type: Spontaneous
  Country: FR (occurrence: FR)
  Receive Date: 20170109
  Receipt Date: 20170109
  Transmission Date: 20170428
  Serious: Yes (Hospitalization, Other)
  Sender: FDA-Public Use
  Company Number: FR-AMGEN-FRASP2017001048

PATIENT
  Age: 37 Year
  Sex: Female

DRUGS (2)
  1. NPLATE [Suspect]
     Active Substance: ROMIPLOSTIM
     Indication: IMMUNE THROMBOCYTOPENIC PURPURA
     Dosage: 50 MUG (350 MCG, 1 IN 1 WEEK), QWK
     Route: 058
     Dates: end: 201611
  2. PARACETAMOL [Concomitant]
     Active Substance: ACETAMINOPHEN
     Dosage: UNK UNK, QWK

REACTIONS (1)
  - Myelofibrosis [Recovering/Resolving]

NARRATIVE: CASE EVENT DATE: 201511
